FAERS Safety Report 8377444-9 (Version None)
Quarter: 2012Q2

REPORT INFORMATION
  Report Type: 
  Country: None (occurrence: None)
  Receive Date: 20120522
  Receipt Date: 20120313
  Transmission Date: 20120825
  Serious: No
  Sender: FDA-Public Use
  Company Number: US-ASTRAZENECA-2012SE17066

PATIENT
  Age: 67 Year
  Sex: Female

DRUGS (1)
  1. PRILOSEC [Suspect]
     Route: 048

REACTIONS (3)
  - BLOOD POTASSIUM ABNORMAL [None]
  - ASTHENIA [None]
  - DRUG EFFECT DECREASED [None]
